FAERS Safety Report 5666730-9 (Version None)
Quarter: 2008Q1

REPORT INFORMATION
  Report Type: 
  Country: None (occurrence: None)
  Receive Date: 20080315
  Receipt Date: 20080117
  Transmission Date: 20080703
  Serious: No
  Sender: FDA-Public Use
  Company Number: US-ABBOTT-07P-163-0431516-00

PATIENT
  Sex: Female
  Weight: 93.6 kg

DRUGS (9)
  1. HUMIRA [Suspect]
     Indication: RHEUMATOID ARTHRITIS
     Route: 058
     Dates: start: 20071217, end: 20071217
  2. AMLODIPINE [Concomitant]
     Indication: HYPERTENSION
     Route: 048
  3. FOLIC ACID [Concomitant]
     Indication: SUPPLEMENTATION THERAPY
     Route: 048
  4. METHOTREXATE [Concomitant]
     Indication: RHEUMATOID ARTHRITIS
     Route: 048
     Dates: start: 20060101
  5. PREDNISONE [Concomitant]
     Indication: RHEUMATOID ARTHRITIS
     Route: 048
     Dates: start: 20060101
  6. HYDROCO [Concomitant]
     Indication: ARTHRALGIA
     Route: 048
     Dates: start: 20071101
  7. AMLODIPINE [Concomitant]
     Route: 048
  8. SALBUTAMOL SULFATE [Concomitant]
     Indication: ASTHMA
     Route: 055
  9. SERETIDE [Concomitant]
     Indication: ASTHMA
     Route: 055

REACTIONS (2)
  - DYSPNOEA [None]
  - RASH PRURITIC [None]
